FAERS Safety Report 16406489 (Version 2)
Quarter: 2019Q3

REPORT INFORMATION
  Report Type: Spontaneous
  Country: IT (occurrence: IT)
  Receive Date: 20190607
  Receipt Date: 20190702
  Transmission Date: 20191004
  Serious: Yes (Death)
  Sender: FDA-Public Use
  Company Number: IT-009507513-1906ITA002037

PATIENT
  Age: 42 Year
  Sex: Male

DRUGS (2)
  1. PEMBROLIZUMAB. [Suspect]
     Active Substance: PEMBROLIZUMAB
     Indication: THYMIC CANCER METASTATIC
     Dosage: 200 MILLIGRAM, CYCLICAL
     Route: 042
     Dates: start: 20190327, end: 20190418
  2. TRIMETON (PHENIRAMINE MALEATE) [Concomitant]
     Indication: ANTIALLERGIC THERAPY
     Route: 042

REACTIONS (4)
  - Hypertransaminasaemia [Fatal]
  - Hyperammonaemic encephalopathy [Fatal]
  - Hyperbilirubinaemia [Fatal]
  - Hepatic failure [Fatal]

NARRATIVE: CASE EVENT DATE: 20190509
